FAERS Safety Report 6045782-0 (Version None)
Quarter: 2009Q1

REPORT INFORMATION
  Report Type: 
  Country: None (occurrence: None)
  Receive Date: 20090121
  Receipt Date: 20090115
  Transmission Date: 20090719
  Serious: Yes (Hospitalization)
  Sender: FDA-Public Use
  Company Number: JP-BRISTOL-MYERS SQUIBB COMPANY-14460034

PATIENT
  Age: 59 Year
  Sex: Female

DRUGS (9)
  1. ABATACEPT [Suspect]
     Indication: RHEUMATOID ARTHRITIS
     Route: 041
     Dates: start: 20070718
  2. VOLTAREN [Concomitant]
     Indication: RHEUMATOID ARTHRITIS
     Dosage: FORMULATION=SRC; 09-MAY-07 TO 04-JAN-09; 10-JAN-09 TO ONGOING
     Route: 048
     Dates: start: 20070509
  3. PREDNISOLONE [Concomitant]
     Indication: RHEUMATOID ARTHRITIS
     Dosage: FORMULATION=TAB; 09-MAY-07 TO 04-JAN-09; 10-JAN-09 TO ONGOING
     Route: 048
     Dates: start: 20070509
  4. RHEUMATREX [Concomitant]
     Indication: RHEUMATOID ARTHRITIS
     Dosage: FORMULATION=CAP; 09-MAY-07 TO 04-JAN-09; 10-JAN-09 TO ONGOING
     Route: 048
     Dates: start: 20070509
  5. SELTOUCH [Concomitant]
     Indication: RHEUMATOID ARTHRITIS
     Dosage: FORMULATION=TAP
     Route: 061
     Dates: start: 20080903
  6. MICARDIS [Concomitant]
     Indication: HYPERTENSION
     Dosage: FORMULATION=CAP. START DATE = PRIOR TO OBTAINING IC TO 04-JAN-09; 10-JAN-09 TO ONGOING
     Route: 048
  7. CYTOTEC [Concomitant]
     Indication: PROPHYLAXIS AGAINST GASTROINTESTINAL ULCER
     Dosage: FORMULATION=CAP. START DATE = PRIOR TO OBTAINING IC TO 04-JAN-09; 10-JAN-09 TO ONGOING
     Route: 048
  8. RABEPRAZOLE SODIUM [Concomitant]
     Indication: REFLUX OESOPHAGITIS
     Dosage: FORMULATION=TAB. START DATE = PRIOR TO OBTAINING IC TO 04-JAN-09; 10-JAN-09 TO ONGOING
     Route: 048
  9. BONALON [Concomitant]
     Indication: OSTEOPOROSIS
     Dosage: FORMULATION=TAB. START DATE = PRIOR TO OBTAINING IC 04-JAN-09; 10-JAN-09 TO ONGOING
     Route: 048

REACTIONS (1)
  - VERTIGO POSITIONAL [None]
